FAERS Safety Report 22033599 (Version 1)
Quarter: 2023Q1

REPORT INFORMATION
  Report Type: Report from Study
  Country: CZ (occurrence: None)
  Receive Date: 20230224
  Receipt Date: 20230224
  Transmission Date: 20230417
  Serious: Yes (Hospitalization)
  Sender: FDA-Public Use
  Company Number: CZ-ROCHE-3284873

PATIENT
  Age: 79 Year
  Sex: Male
  Weight: 86 kg

DRUGS (15)
  1. PIRFENIDONE [Suspect]
     Active Substance: PIRFENIDONE
     Indication: Idiopathic pulmonary fibrosis
     Route: 048
     Dates: start: 20160718
  2. NINTEDANIB [Concomitant]
     Active Substance: NINTEDANIB
     Indication: Idiopathic pulmonary fibrosis
     Dosage: ON 30/NOV/2022, HE RECEIVED MOST RECENT DOSE OF NINTEDANIB 250 MG PRIOR TO SAE.
     Route: 048
     Dates: start: 20170411
  3. SPIRONOLACTONE [Concomitant]
     Active Substance: SPIRONOLACTONE
     Indication: Pulmonary hypertension
     Route: 048
     Dates: start: 202106, end: 20221130
  4. FUROSEMIDE [Concomitant]
     Active Substance: FUROSEMIDE
     Indication: Pulmonary hypertension
     Route: 048
     Dates: start: 202106
  5. LANSOPRAZOLE [Concomitant]
     Active Substance: LANSOPRAZOLE
     Route: 048
     Dates: start: 202106, end: 20221130
  6. PREDNISONE [Concomitant]
     Active Substance: PREDNISONE
     Indication: Idiopathic pulmonary fibrosis
     Route: 048
     Dates: start: 202106, end: 20221130
  7. OXYGEN [Concomitant]
     Active Substance: OXYGEN
     Indication: Idiopathic pulmonary fibrosis
     Dosage: 2 INHALATION
     Route: 055
     Dates: start: 202106
  8. TELMISARTAN [Concomitant]
     Active Substance: TELMISARTAN
     Indication: Pulmonary hypertension
     Route: 048
     Dates: start: 2012, end: 20221130
  9. NEBIVOLOL [Concomitant]
     Active Substance: NEBIVOLOL
     Route: 048
     Dates: start: 2012, end: 20221130
  10. PRADAXA [Concomitant]
     Active Substance: DABIGATRAN ETEXILATE MESYLATE
     Route: 048
     Dates: start: 2012, end: 20221130
  11. DIOSMIN\HESPERIDIN [Concomitant]
     Active Substance: DIOSMIN\HESPERIDIN
     Route: 048
     Dates: start: 2005, end: 20221130
  12. METOPROLOL SUCCINATE [Concomitant]
     Active Substance: METOPROLOL SUCCINATE
     Route: 047
     Dates: start: 20221212
  13. PURINOL (CZECH REPUBLIC) [Concomitant]
     Indication: Hyperuricaemia
     Dates: start: 20221212
  14. ELIQUIS [Concomitant]
     Active Substance: APIXABAN
     Indication: Atrial fibrillation
     Route: 048
     Dates: start: 20221212
  15. DIGOXIN [Concomitant]
     Active Substance: DIGOXIN
     Indication: Atrial fibrillation
     Route: 048
     Dates: start: 20221130

REACTIONS (1)
  - Dyspnoea [Recovered/Resolved]

NARRATIVE: CASE EVENT DATE: 20221130
